FAERS Safety Report 23619232 (Version 1)
Quarter: 2024Q1

REPORT INFORMATION
  Report Type: Spontaneous
  Country: PT (occurrence: PT)
  Receive Date: 20240311
  Receipt Date: 20240311
  Transmission Date: 20240409
  Serious: Yes (Other)
  Sender: FDA-Public Use
  Company Number: PT-GILEAD-2024-0665183

PATIENT
  Age: 65 Year
  Sex: Female

DRUGS (2)
  1. TRODELVY [Suspect]
     Active Substance: SACITUZUMAB GOVITECAN-HZIY
     Indication: Product used for unknown indication
     Dosage: C1D1
     Route: 065
     Dates: start: 20221120
  2. TRODELVY [Suspect]
     Active Substance: SACITUZUMAB GOVITECAN-HZIY
     Dosage: C5D8
     Route: 065
     Dates: start: 20230202

REACTIONS (2)
  - Blindness [Unknown]
  - Nausea [Unknown]

NARRATIVE: CASE EVENT DATE: 20230130
